FAERS Safety Report 21143103 (Version 2)
Quarter: 2022Q3

REPORT INFORMATION
  Report Type: Spontaneous
  Country: ES (occurrence: ES)
  Receive Date: 20220728
  Receipt Date: 20220810
  Transmission Date: 20221026
  Serious: Yes (Death, Hospitalization)
  Sender: FDA-Public Use
  Company Number: ES-TEVA-2022-ES-2057788

PATIENT
  Age: 62 Year
  Sex: Male

DRUGS (5)
  1. AMPHOTERICIN B [Suspect]
     Active Substance: AMPHOTERICIN B
     Indication: Fungal infection
     Route: 065
  2. TACROLIMUS [Suspect]
     Active Substance: TACROLIMUS
     Indication: Immunosuppressant drug therapy
     Route: 065
  3. CYCLOSPORINE [Suspect]
     Active Substance: CYCLOSPORINE
     Indication: Immunosuppressant drug therapy
     Route: 065
  4. MYCOPHENOLIC ACID [Suspect]
     Active Substance: MYCOPHENOLIC ACID
     Indication: Immunosuppressant drug therapy
     Route: 065
  5. FLUCONAZOLE [Suspect]
     Active Substance: FLUCONAZOLE
     Indication: Fungal infection
     Route: 065

REACTIONS (11)
  - Meningitis cryptococcal [Fatal]
  - Drug ineffective [Fatal]
  - Neurotoxicity [Unknown]
  - Cerebral infarction [Unknown]
  - Intracranial pressure increased [Unknown]
  - Encephalitis [Unknown]
  - Central nervous system vasculitis [Unknown]
  - Cryptococcosis [Unknown]
  - Facial paralysis [Unknown]
  - Hemiparesis [Unknown]
  - Cerebrovascular accident [Unknown]
